FAERS Safety Report 4843990-5 (Version None)
Quarter: 2005Q4

REPORT INFORMATION
  Report Type: 
  Country: None (occurrence: None)
  Receive Date: 20051202
  Receipt Date: 20050513
  Transmission Date: 20060501
  Serious: No
  Sender: FDA-Public Use
  Company Number: US-GLAXOSMITHKLINE-A0558520A

PATIENT
  Age: 62 Year
  Sex: Male

DRUGS (6)
  1. AUGMENTIN [Suspect]
     Indication: PNEUMONIA
     Dosage: 2000MG TWICE PER DAY
     Route: 048
     Dates: start: 20050511
  2. ATENOLOL [Concomitant]
  3. ZESTRIL [Concomitant]
  4. LIPITOR [Concomitant]
  5. DIAZEPAM [Concomitant]
  6. AMITRIPTYLINE HCL [Concomitant]

REACTIONS (1)
  - DIARRHOEA [None]
